FAERS Safety Report 4634573-0 (Version None)
Quarter: 2005Q2

REPORT INFORMATION
  Report Type: 
  Country: None (occurrence: None)
  Receive Date: 20050411
  Receipt Date: 20050401
  Transmission Date: 20051028
  Serious: Yes (Hospitalization)
  Sender: FDA-Public Use
  Company Number: 2005-04-0019

PATIENT
  Age: 29 Month
  Sex: Male
  Weight: 13 kg

DRUGS (4)
  1. CELESTONE [Suspect]
     Indication: RHINOTRACHEITIS
     Dosage: 0.5 MG TID ORAL
     Route: 048
     Dates: start: 20050304, end: 20050309
  2. OROKEN (CEFIXIME) ORAL SUSPENSION [Suspect]
     Indication: RHINOTRACHEITIS
     Dosage: ORAL
     Route: 048
     Dates: start: 20050304, end: 20050309
  3. TOPLEXIL SYRUP [Concomitant]
  4. COQUELUSEDAL SUPPOSITORIES [Concomitant]

REACTIONS (1)
  - PNEUMONIA PNEUMOCOCCAL [None]
